FAERS Safety Report 14541145 (Version 1)
Quarter: 2018Q1

REPORT INFORMATION
  Report Type: Spontaneous
  Country: FR (occurrence: FR)
  Receive Date: 20180216
  Receipt Date: 20180216
  Transmission Date: 20180509
  Serious: Yes (Life-Threatening, Hospitalization)
  Sender: FDA-Public Use
  Company Number: FR-OTSUKA-DJ20107245

PATIENT
  Age: 36 Year
  Sex: Female
  Weight: 70 kg

DRUGS (8)
  1. TEGRETOL [Concomitant]
     Active Substance: CARBAMAZEPINE
     Indication: EPILEPSY
     Dosage: 200 MG, BID
     Route: 065
     Dates: start: 2005
  2. LEVOTHYROX [Concomitant]
     Active Substance: LEVOTHYROXINE
     Indication: HYPOTHYROIDISM
     Dosage: UNK
     Route: 065
     Dates: start: 2005
  3. KEPPRA [Concomitant]
     Active Substance: LEVETIRACETAM
     Indication: EPILEPSY
     Dosage: UNK
     Route: 065
     Dates: start: 2005
  4. LYSANXIA [Concomitant]
     Active Substance: PRAZEPAM
     Indication: AUTISM SPECTRUM DISORDER
     Dosage: UNK
     Route: 048
     Dates: start: 2005
  5. ABILIFY [Suspect]
     Active Substance: ARIPIPRAZOLE
     Indication: AUTISM SPECTRUM DISORDER
     Dosage: 10 MG, UNK
     Route: 048
     Dates: start: 20101127
  6. ABILIFY [Suspect]
     Active Substance: ARIPIPRAZOLE
     Indication: INTELLECTUAL DISABILITY
  7. EPITOMAX [Concomitant]
     Active Substance: TOPIRAMATE
     Indication: EPILEPSY
     Dosage: UNK
     Route: 065
  8. ABILIFY [Suspect]
     Active Substance: ARIPIPRAZOLE
     Indication: ASTHENIA
     Dosage: 15 MG, UNK
     Route: 048
     Dates: end: 20101211

REACTIONS (2)
  - Depressed level of consciousness [Recovered/Resolved]
  - Hypothermia [Recovered/Resolved]

NARRATIVE: CASE EVENT DATE: 20101211
